FAERS Safety Report 23242977 (Version 3)
Quarter: 2024Q1

REPORT INFORMATION
  Report Type: Spontaneous
  Country: GB (occurrence: GB)
  Receive Date: 20231129
  Receipt Date: 20240113
  Transmission Date: 20240410
  Serious: Yes (Other)
  Sender: FDA-Public Use
  Company Number: GB-CELLTRION INC.-2023GB018934

PATIENT

DRUGS (1)
  1. YUFLYMA [Suspect]
     Active Substance: ADALIMUMAB-AATY
     Indication: Colitis ulcerative
     Dosage: UNK
     Route: 058
     Dates: start: 20230908

REACTIONS (6)
  - Endodontic procedure [Not Recovered/Not Resolved]
  - Haematochezia [Not Recovered/Not Resolved]
  - Blister [Recovered/Resolved]
  - Diarrhoea [Not Recovered/Not Resolved]
  - Tooth abscess [Not Recovered/Not Resolved]
  - Intentional dose omission [Not Recovered/Not Resolved]

NARRATIVE: CASE EVENT DATE: 20230924
